FAERS Safety Report 8294709-X (Version None)
Quarter: 2012Q2

REPORT INFORMATION
  Report Type: 
  Country: None (occurrence: None)
  Receive Date: 20120418
  Receipt Date: 20120403
  Transmission Date: 20120825
  Serious: Yes (Other)
  Sender: FDA-Public Use
  Company Number: FI-AMGEN-FINSP2012012514

PATIENT
  Age: 4 Year
  Sex: Male

DRUGS (5)
  1. METHOTREXATE [Concomitant]
     Dosage: 12.5 MG, UNK
  2. ENBREL [Suspect]
     Indication: JUVENILE ARTHRITIS
     Dosage: UNK
     Dates: start: 20120113, end: 20120101
  3. ENBREL [Suspect]
     Dosage: 17.5 MG, 2X/WEEK
     Dates: start: 20120222, end: 20120101
  4. ENBREL [Suspect]
     Dosage: 12.5 MG, 2X/WEEK
     Dates: start: 20120101, end: 20120101
  5. ENBREL [Suspect]
     Dosage: 20 MG, 2X/WEEK
     Dates: start: 20120101

REACTIONS (6)
  - HEART RATE IRREGULAR [None]
  - VOMITING [None]
  - HEART RATE INCREASED [None]
  - DRUG INEFFECTIVE [None]
  - DIZZINESS [None]
  - NAUSEA [None]
